FAERS Safety Report 6816384-0 (Version None)
Quarter: 2010Q3

REPORT INFORMATION
  Report Type: 
  Country: None (occurrence: None)
  Receive Date: 20100705
  Receipt Date: 20100629
  Transmission Date: 20110219
  Serious: Yes (Death, Hospitalization, Other)
  Sender: FDA-Public Use
  Company Number: PHHY2009JP05626

PATIENT
  Sex: Male
  Weight: 51 kg

DRUGS (6)
  1. DIOVAN [Suspect]
     Indication: CARDIAC FAILURE
     Dosage: 20 MG ONCE DAILY
     Route: 048
     Dates: start: 20080104, end: 20080123
  2. WARFARIN [Concomitant]
     Dosage: UNK
     Route: 048
     Dates: start: 20080101
  3. TAKEPRON [Concomitant]
     Dosage: UNK
     Route: 048
     Dates: start: 20080101
  4. LASIX [Concomitant]
     Dosage: 20 MG, UNK
     Dates: start: 20080110
  5. LASIX [Concomitant]
     Dosage: 40 MG, UNK
     Route: 048
     Dates: end: 20080123
  6. ALDACTONE [Concomitant]
     Dosage: 25 MG, UNK
     Route: 048
     Dates: start: 20080110, end: 20080123

REACTIONS (6)
  - ACUTE RESPIRATORY DISTRESS SYNDROME [None]
  - BLOOD PRESSURE DECREASED [None]
  - CARDIAC FAILURE CHRONIC [None]
  - DYSPNOEA [None]
  - ENDOTRACHEAL INTUBATION [None]
  - PNEUMONIA [None]
